FAERS Safety Report 5022550-X (Version None)
Quarter: 2006Q2

REPORT INFORMATION
  Report Type: 
  Country: None (occurrence: None)
  Receive Date: 20060609
  Receipt Date: 20060602
  Transmission Date: 20061013
  Serious: Yes (Other)
  Sender: FDA-Public Use
  Company Number: US-SANOFI-SYNTHELABO-A03200603539

PATIENT
  Age: 65 Year
  Sex: Male

DRUGS (5)
  1. LORATADINE [Concomitant]
     Dosage: UNK
     Route: 065
     Dates: start: 20060530
  2. ASPIRIN [Concomitant]
     Dosage: UNK
     Route: 065
  3. TOPROL-XL [Concomitant]
     Dosage: UNK
     Route: 065
  4. VYTORIN [Concomitant]
     Dosage: UNK
     Route: 065
  5. AMBIEN [Suspect]
     Indication: INSOMNIA
     Route: 048
     Dates: start: 20060419

REACTIONS (3)
  - RESTLESSNESS [None]
  - ROAD TRAFFIC ACCIDENT [None]
  - SLEEP WALKING [None]
